FAERS Safety Report 21938710 (Version 1)
Quarter: 2023Q1

REPORT INFORMATION
  Report Type: Report from Study
  Country: US (occurrence: US)
  Receive Date: 20230201
  Receipt Date: 20230201
  Transmission Date: 20230418
  Serious: Yes (Other)
  Sender: FDA-Public Use
  Company Number: US-EXELIXIS-CABO-21047073

PATIENT
  Sex: Male

DRUGS (2)
  1. CABOMETYX [Suspect]
     Active Substance: CABOZANTINIB S-MALATE
     Indication: Ureteral disorder
     Dosage: 40 MG
     Dates: start: 20211022
  2. CABOMETYX [Suspect]
     Active Substance: CABOZANTINIB S-MALATE
     Dosage: 20 MG
     Dates: start: 20211123

REACTIONS (6)
  - Pulmonary embolism [Unknown]
  - Myalgia [Unknown]
  - Thrombosis [Unknown]
  - Arthralgia [Unknown]
  - Blood pressure increased [Unknown]
  - Off label use [Unknown]
